FAERS Safety Report 5416539-6 (Version None)
Quarter: 2007Q3

REPORT INFORMATION
  Report Type: 
  Country: None (occurrence: None)
  Receive Date: 20070814
  Receipt Date: 20070814
  Transmission Date: 20080115
  Serious: Yes (Death)
  Sender: FDA-Public Use
  Company Number: None

PATIENT
  Age: 16 Year
  Sex: Male
  Weight: 59.8748 kg

DRUGS (2)
  1. FLUOXETINE [Suspect]
     Indication: ANXIETY
     Dosage: 2 CAPSULES -20MG- DAILY PO
     Route: 048
     Dates: start: 20070618, end: 20070730
  2. FLUOXETINE [Suspect]
     Indication: DEPRESSION
     Dosage: 2 CAPSULES -20MG- DAILY PO
     Route: 048
     Dates: start: 20070618, end: 20070730

REACTIONS (4)
  - ABNORMAL BEHAVIOUR [None]
  - COMPLETED SUICIDE [None]
  - GUN SHOT WOUND [None]
  - HEAD INJURY [None]
